FAERS Safety Report 20023999 (Version 1)
Quarter: 2021Q4

REPORT INFORMATION
  Report Type: Other
  Country: US (occurrence: None)
  Receive Date: 20211102
  Receipt Date: 20211102
  Transmission Date: 20220303
  Serious: Yes (Other)
  Sender: FDA-Public Use
  Company Number: US-Neopharma Inc-000649

PATIENT
  Age: 88 Year
  Sex: Female

DRUGS (3)
  1. AMOXICILLIN [Suspect]
     Active Substance: AMOXICILLIN
     Indication: Actinomycotic abdominal infection
     Dosage: EIGHT HOURLY 500 MG
     Route: 048
  2. CEFAZOLIN [Concomitant]
     Active Substance: CEFAZOLIN
     Indication: Diverticulitis
     Route: 042
  3. METRONIDAZOLE [Concomitant]
     Active Substance: METRONIDAZOLE
     Indication: Diverticulitis
     Dosage: 0.5 GM EVERY 8 HRS
     Route: 042

REACTIONS (4)
  - Drug ineffective [Unknown]
  - Infection [Recovered/Resolved]
  - Actinomycotic abdominal infection [Recovered/Resolved]
  - Large intestinal stenosis [Recovered/Resolved]
